FAERS Safety Report 24759985 (Version 1)
Quarter: 2024Q4

REPORT INFORMATION
  Report Type: Spontaneous
  Country: US (occurrence: None)
  Receive Date: 20241219
  Receipt Date: 20241219
  Transmission Date: 20250115
  Serious: No
  Sender: Public
  Company Number: None

PATIENT
  Age: 55 Year
  Sex: Female
  Weight: 87.75 kg

DRUGS (18)
  1. HUMIRA [Suspect]
     Active Substance: ADALIMUMAB
     Indication: Rheumatoid arthritis
     Dosage: 1 INJECTION ONCE EVERY OTHER W TOPICAL
     Route: 061
     Dates: start: 20241206
  2. METHOTREXATE [Suspect]
     Active Substance: METHOTREXATE
  3. AMPHETAMINE\DEXTROAMPHETAMINE [Suspect]
     Active Substance: AMPHETAMINE\DEXTROAMPHETAMINE
  4. METFORMIN [Concomitant]
     Active Substance: METFORMIN HYDROCHLORIDE
  5. FOLIC ACID [Concomitant]
     Active Substance: FOLIC ACID
  6. PREDNISONE [Concomitant]
     Active Substance: PREDNISONE
  7. LISINOPRIL [Concomitant]
     Active Substance: LISINOPRIL
  8. LEVOTHYROXINE [Concomitant]
     Active Substance: LEVOTHYROXINE
  9. Liothyroninr [Concomitant]
  10. TIZANIDINE [Concomitant]
     Active Substance: TIZANIDINE
  11. MELOXICAM [Concomitant]
     Active Substance: MELOXICAM
  12. B12 sublingual [Concomitant]
  13. ALPHA LIPOIC ACID [Concomitant]
     Active Substance: .ALPHA.-LIPOIC ACID
  14. MAGNESIUM [Concomitant]
     Active Substance: MAGNESIUM
  15. FISH OIL [Concomitant]
     Active Substance: FISH OIL
  16. VITAMIN D NOS [Concomitant]
     Active Substance: CHOLECALCIFEROL\ERGOCALCIFEROL
  17. VITAMIN E [Concomitant]
     Active Substance: .ALPHA.-TOCOPHEROL
  18. IRON [Concomitant]
     Active Substance: IRON

REACTIONS (9)
  - Muscle spasms [None]
  - Pain [None]
  - Nausea [None]
  - Abdominal pain [None]
  - Flatulence [None]
  - Constipation [None]
  - Inflammation [None]
  - Musculoskeletal stiffness [None]
  - Arthralgia [None]

NARRATIVE: CASE EVENT DATE: 20241206
